FAERS Safety Report 23773758 (Version 1)
Quarter: 2024Q2

REPORT INFORMATION
  Report Type: Spontaneous
  Country: US (occurrence: US)
  Receive Date: 20240423
  Receipt Date: 20240423
  Transmission Date: 20240716
  Serious: No
  Sender: FDA-Public Use
  Company Number: US-UROGEN PHARMA LTD.-2024-UGN-000047

PATIENT

DRUGS (3)
  1. JELMYTO [Suspect]
     Active Substance: MITOMYCIN
     Indication: Transitional cell cancer of the renal pelvis and ureter
     Dosage: ONCE A WEEK, ANTEGRADE (INSTILLATION)
     Dates: start: 20240308, end: 20240308
  2. JELMYTO [Suspect]
     Active Substance: MITOMYCIN
     Dosage: ONCE A WEEK, ANTEGRADE (INSTILLATION)
     Dates: start: 20240315, end: 20240315
  3. JELMYTO [Suspect]
     Active Substance: MITOMYCIN
     Dosage: ONCE A WEEK, ANTEGRADE (INSTILLATION)
     Dates: start: 20240322, end: 20240322

REACTIONS (1)
  - Rash [Unknown]

NARRATIVE: CASE EVENT DATE: 20240301
